FAERS Safety Report 8990352 (Version 1)
Quarter: 2012Q4

REPORT INFORMATION
  Report Type: Report from Study
  Country: DE (occurrence: JP)
  Receive Date: 20121228
  Receipt Date: 20121228
  Transmission Date: 20130627
  Serious: Yes (Death)
  Sender: FDA-Public Use
  Company Number: JP-FRI-1000041245

PATIENT
  Sex: Female

DRUGS (6)
  1. MEMANTINE [Suspect]
     Indication: DEMENTIA ALZHEIMER^S TYPE
     Dosage: 5 mg
     Route: 048
     Dates: start: 20120621, end: 20120627
  2. MEMANTINE [Suspect]
     Dosage: 10 mg
     Route: 048
     Dates: start: 20120628, end: 20120704
  3. MEMANTINE [Suspect]
     Dosage: 15 mg
     Route: 048
     Dates: start: 20120705, end: 20120711
  4. MEMANTINE [Suspect]
     Dosage: 20 mg
     Route: 048
     Dates: start: 20120712, end: 20121203
  5. ARICEPT ODT [Concomitant]
     Indication: DEMENTIA ALZHEIMER^S TYPE
     Dosage: 10 mg
     Route: 048
     Dates: start: 20110602, end: 20121203
  6. D-ALFA [Concomitant]
     Dosage: 0.5 mcg
     Route: 048
     Dates: end: 20121203

REACTIONS (1)
  - Death [Fatal]
